FAERS Safety Report 8474017-4 (Version None)
Quarter: 2012Q2

REPORT INFORMATION
  Report Type: 
  Country: None (occurrence: None)
  Receive Date: 20120628
  Receipt Date: 20120521
  Transmission Date: 20120825
  Serious: Yes (Other)
  Sender: FDA-Public Use
  Company Number: US-MYLANLABS-2012S1006904

PATIENT
  Age: 22 Year
  Sex: Male
  Weight: 114.31 kg

DRUGS (6)
  1. CLOZAPINE [Suspect]
     Route: 048
     Dates: start: 20120401
  2. NEXIUM [Concomitant]
  3. DEPAKOTE ER [Concomitant]
  4. CEPHALEXIN [Concomitant]
     Dates: start: 20120301, end: 20120301
  5. CLOZAPINE [Suspect]
     Indication: INTERMITTENT EXPLOSIVE DISORDER
     Route: 048
     Dates: start: 20120220, end: 20120406
  6. LEVOTHYROXINE [Concomitant]

REACTIONS (1)
  - GRANULOCYTOPENIA [None]
